FAERS Safety Report 11503965 (Version 1)
Quarter: 2015Q3

REPORT INFORMATION
  Report Type: Spontaneous
  Country: FR (occurrence: FR)
  Receive Date: 20150914
  Receipt Date: 20150914
  Transmission Date: 20151125
  Serious: Yes (Hospitalization)
  Sender: FDA-Public Use
  Company Number: PHHY2015FR108222

PATIENT
  Age: 92 Year
  Sex: Male

DRUGS (1)
  1. AMOXICILLIN CLAVULANIC ACID SANDOZ [Suspect]
     Active Substance: AMOXICILLIN\CLAVULANIC ACID
     Indication: LUNG DISORDER
     Dosage: 1 G, TID
     Route: 048
     Dates: start: 20150716, end: 20150716

REACTIONS (6)
  - Hypoxia [Recovered/Resolved]
  - Pruritus [Recovered/Resolved]
  - Leukocytosis [Recovered/Resolved]
  - Hypotension [Recovered/Resolved]
  - Acute kidney injury [Recovered/Resolved]
  - Rash macular [Recovered/Resolved]

NARRATIVE: CASE EVENT DATE: 20150716
